FAERS Safety Report 24339389 (Version 1)
Quarter: 2024Q3

REPORT INFORMATION
  Report Type: Spontaneous
  Country: US (occurrence: None)
  Receive Date: 20240918
  Receipt Date: 20240918
  Transmission Date: 20241017
  Serious: No
  Sender: Public
  Company Number: None

PATIENT
  Age: 14 Year
  Sex: Female
  Weight: 85.05 kg

DRUGS (12)
  1. NEXPLANON [Suspect]
     Active Substance: ETONOGESTREL
     Indication: Contraception
     Dosage: OTHER QUANTITY : 1 IMPLANT ROD;?OTHER FREQUENCY : ONCE EVERY 3 YEARS;?
     Route: 058
     Dates: start: 20240904
  2. LEXAPRO [Concomitant]
     Active Substance: ESCITALOPRAM OXALATE
  3. METFORMIN [Concomitant]
     Active Substance: METFORMIN HYDROCHLORIDE
  4. DEPAKOTE [Concomitant]
     Active Substance: DIVALPROEX SODIUM
  5. TRAZODONE [Concomitant]
     Active Substance: TRAZODONE HYDROCHLORIDE
  6. MELATONIN [Concomitant]
     Active Substance: MELATONIN
  7. ATARAX [Concomitant]
     Active Substance: HYDROXYZINE HYDROCHLORIDE
  8. guanfacine(Intuniv) [Concomitant]
  9. TYLENOL [Concomitant]
     Active Substance: ACETAMINOPHEN
  10. HERBALS [Concomitant]
     Active Substance: HERBALS
  11. green/black tea [Concomitant]
  12. TUMS/Antacid [Concomitant]

REACTIONS (3)
  - Fatigue [None]
  - Disturbance in attention [None]
  - Somnolence [None]

NARRATIVE: CASE EVENT DATE: 20240905
